FAERS Safety Report 6303259-9 (Version None)
Quarter: 2009Q3

REPORT INFORMATION
  Report Type: 
  Country: None (occurrence: None)
  Receive Date: 20090810
  Receipt Date: 20090329
  Transmission Date: 20100115
  Serious: No
  Sender: FDA-Public Use
  Company Number: A0776920A

PATIENT
  Age: 82 Year
  Sex: Female

DRUGS (1)
  1. PAXIL [Suspect]
     Indication: DRUG USE FOR UNKNOWN INDICATION
     Route: 048

REACTIONS (4)
  - AMNESIA [None]
  - CONFUSIONAL STATE [None]
  - MEDICATION ERROR [None]
  - WITHDRAWAL SYNDROME [None]
